FAERS Safety Report 6420950-4 (Version None)
Quarter: 2009Q4

REPORT INFORMATION
  Report Type: 
  Country: None (occurrence: None)
  Receive Date: 20091028
  Receipt Date: 20091014
  Transmission Date: 20100525
  Serious: Yes (Hospitalization)
  Sender: FDA-Public Use
  Company Number: DSU-2009-02222

PATIENT
  Sex: Male
  Weight: 96.1626 kg

DRUGS (11)
  1. WELCHOL [Suspect]
     Dosage: SEE IMAGE
     Route: 048
     Dates: start: 20090101, end: 20090101
  2. WELCHOL [Suspect]
     Dosage: SEE IMAGE
     Route: 048
     Dates: start: 20090101, end: 20091001
  3. WELCHOL [Suspect]
     Dosage: SEE IMAGE
     Route: 048
     Dates: start: 20091001
  4. PRILOSEC [Concomitant]
  5. ZANTAC 150 [Concomitant]
  6. PLAVIX [Concomitant]
  7. METOPROLOL (METOPROLOL) [Concomitant]
  8. LYRICA [Concomitant]
  9. MULTI-VITAMINS [Concomitant]
  10. LOVAZA [Concomitant]
  11. FLAX SEED OIL (LINUM USITATISSIMUM SEED OIL) [Concomitant]

REACTIONS (9)
  - BLOOD CHOLESTEROL INCREASED [None]
  - BLOOD TRIGLYCERIDES INCREASED [None]
  - CONDITION AGGRAVATED [None]
  - CONSTIPATION [None]
  - CORONARY ARTERY OCCLUSION [None]
  - GASTROOESOPHAGEAL REFLUX DISEASE [None]
  - HAEMORRHOIDS [None]
  - HIGH DENSITY LIPOPROTEIN DECREASED [None]
  - RECTAL HAEMORRHAGE [None]
